FAERS Safety Report 7441425-X (Version None)
Quarter: 2011Q2

REPORT INFORMATION
  Report Type: 
  Country: None (occurrence: None)
  Receive Date: 20110428
  Receipt Date: 20110415
  Transmission Date: 20111010
  Serious: Yes (Hospitalization)
  Sender: FDA-Public Use
  Company Number: FR-JNJFOC-20101200924

PATIENT
  Sex: Male

DRUGS (1)
  1. RISPERDAL CONSTA [Suspect]
     Indication: PRODUCT USED FOR UNKNOWN INDICATION
     Route: 030

REACTIONS (5)
  - DEVICE MALFUNCTION [None]
  - DEVICE LEAKAGE [None]
  - UNDERDOSE [None]
  - WRONG TECHNIQUE IN DRUG USAGE PROCESS [None]
  - HOSPITALISATION [None]
